FAERS Safety Report 9131611 (Version 1)
Quarter: 2013Q1

REPORT INFORMATION
  Report Type: Spontaneous
  Country: US (occurrence: US)
  Receive Date: 20130301
  Receipt Date: 20130301
  Transmission Date: 20140127
  Serious: Yes (Hospitalization)
  Sender: FDA-Public Use
  Company Number: US-BAYER-2013-024471

PATIENT
  Sex: Male

DRUGS (1)
  1. BAYER GENUINE ASPIRIN ORIGINAL STRENGTH [Suspect]
     Indication: THROMBOSIS PROPHYLAXIS

REACTIONS (4)
  - Faeces discoloured [None]
  - Dizziness [None]
  - Gastrointestinal haemorrhage [None]
  - Intestinal ulcer [None]
